FAERS Safety Report 9776734 (Version 1)
Quarter: 2013Q4

REPORT INFORMATION
  Report Type: Spontaneous
  Country: US (occurrence: US)
  Receive Date: 20131220
  Receipt Date: 20131220
  Transmission Date: 20140711
  Serious: Yes (Death, Hospitalization)
  Sender: FDA-Public Use
  Company Number: PHHY2013US146006

PATIENT
  Age: 88 Year
  Sex: Female

DRUGS (8)
  1. AMIODARONE [Suspect]
     Indication: SINUS RHYTHM
     Dosage: 150 MG, UNK
     Route: 042
  2. AMIODARONE [Suspect]
     Dosage: 360 MG, RATE OF 1 MG/MIN OVER 6 HOURS
  3. AMIODARONE [Suspect]
     Dosage: 0.5 MG/MIN
  4. SERTRALINE [Concomitant]
     Dosage: 25 MG, UNK
  5. LEVOTHYROXINE [Concomitant]
     Dosage: 25 MG, UNK
  6. LISINOPRIL [Concomitant]
     Dosage: 20 MG, UNK
  7. CARVEDILOL [Concomitant]
  8. WARFARIN [Concomitant]

REACTIONS (11)
  - Respiratory failure [Fatal]
  - Device failure [Fatal]
  - Cardiac failure [Unknown]
  - Oedema [Unknown]
  - Pulmonary congestion [Unknown]
  - Coronary artery disease [Unknown]
  - Drug-induced liver injury [Unknown]
  - Transaminases increased [Recovered/Resolved]
  - Renal failure [Unknown]
  - Hepatic congestion [Unknown]
  - Ejection fraction decreased [Unknown]
